FAERS Safety Report 8205361-3 (Version None)
Quarter: 2012Q1

REPORT INFORMATION
  Report Type: 
  Country: None (occurrence: None)
  Receive Date: 20120313
  Receipt Date: 20120302
  Transmission Date: 20120608
  Serious: Yes (Hospitalization, Other)
  Sender: FDA-Public Use
  Company Number: FR-JNJFOC-20100506505

PATIENT
  Age: 65 Year
  Sex: Male
  Weight: 81 kg

DRUGS (11)
  1. CALCIUM CARBONATE [Concomitant]
     Route: 048
     Dates: start: 20100202
  2. REMICADE [Suspect]
     Route: 042
     Dates: start: 20090919
  3. FOLIC ACID [Concomitant]
     Route: 048
     Dates: start: 20091124
  4. HYDROCORTISONE [Concomitant]
     Indication: COLITIS ULCERATIVE
     Route: 048
     Dates: start: 20100202
  5. METHOTREXATE [Suspect]
     Indication: COLITIS ULCERATIVE
     Route: 030
     Dates: start: 20091124, end: 20100101
  6. ALL OTHER THERAPEUTIC PRODUCTS [Concomitant]
     Indication: ABDOMINAL PAIN
     Route: 048
  7. PENTASA [Concomitant]
  8. REMICADE [Suspect]
     Route: 042
     Dates: start: 20090408
  9. HUMIRA [Suspect]
     Indication: COLITIS ULCERATIVE
     Route: 058
     Dates: start: 20100119
  10. REMICADE [Suspect]
     Indication: COLITIS ULCERATIVE
     Route: 042
     Dates: start: 20090506
  11. REMICADE [Suspect]
     Route: 042
     Dates: start: 20090325

REACTIONS (2)
  - PROSTATIC SPECIFIC ANTIGEN INCREASED [None]
  - PROSTATE CANCER METASTATIC [None]
